FAERS Safety Report 10297984 (Version 2)
Quarter: 2014Q3

REPORT INFORMATION
  Report Type: Spontaneous
  Country: US (occurrence: US)
  Receive Date: 20140711
  Receipt Date: 20140711
  Transmission Date: 20150326
  Serious: Yes (Hospitalization, Other)
  Sender: FDA-Public Use
  Company Number: US-ABBVIE-11P-163-0839135-00

PATIENT
  Sex: Male
  Weight: 106.69 kg

DRUGS (5)
  1. PROMETRIUM [Concomitant]
     Active Substance: PROGESTERONE
     Indication: ADRENAL DISORDER
  2. ANDROGEL [Suspect]
     Active Substance: TESTOSTERONE
     Indication: BLOOD TESTOSTERONE DECREASED
     Dosage: THE PATIENT WAS TAKING 100MG, 1 D
     Dates: start: 2004
  3. METHYLPREDNISOLONE [Concomitant]
     Active Substance: METHYLPREDNISOLONE
     Indication: ADRENAL INSUFFICIENCY
  4. UNKNOWN MEDICATION [Concomitant]
     Active Substance: UNSPECIFIED INGREDIENT
     Indication: HYPOTHYROIDISM
  5. METHADONE [Concomitant]
     Active Substance: METHADONE HYDROCHLORIDE
     Indication: PAIN

REACTIONS (6)
  - Back pain [Recovered/Resolved]
  - Pulmonary haemorrhage [Recovered/Resolved]
  - Blood testosterone abnormal [Not Recovered/Not Resolved]
  - Pulmonary embolism [Recovered/Resolved]
  - Loss of consciousness [Recovered/Resolved]
  - Weight increased [Not Recovered/Not Resolved]

NARRATIVE: CASE EVENT DATE: 2004
